FAERS Safety Report 9863798 (Version 1)
Quarter: 2014Q1

REPORT INFORMATION
  Report Type: Spontaneous
  Country: GB (occurrence: GB)
  Receive Date: 20140203
  Receipt Date: 20140203
  Transmission Date: 20141002
  Serious: Yes (Other)
  Sender: FDA-Public Use
  Company Number: GB-UCBSA-110779

PATIENT
  Age: 16 Year
  Sex: Male

DRUGS (2)
  1. KEPPRA [Suspect]
  2. SODIUM VALPROATE [Concomitant]

REACTIONS (1)
  - Vasculitis [Unknown]
